FAERS Safety Report 6046733-5 (Version None)
Quarter: 2009Q1

REPORT INFORMATION
  Report Type: 
  Country: None (occurrence: None)
  Receive Date: 20090122
  Receipt Date: 20081201
  Transmission Date: 20090719
  Serious: Yes (Other)
  Sender: FDA-Public Use
  Company Number: TH-PFIZER INC-2008096419

PATIENT
  Age: 33 Year
  Sex: Female

DRUGS (6)
  1. ZMAX [Suspect]
     Route: 048
     Dates: start: 20081111, end: 20081111
  2. BISOLVON [Concomitant]
     Route: 048
  3. BRUFEN [Concomitant]
     Route: 048
  4. ACTIFED [Concomitant]
     Route: 048
  5. ACETAMINOPHEN [Concomitant]
     Route: 048
  6. HERBAL PREPARATION [Concomitant]
     Route: 048

REACTIONS (7)
  - DOCUMENTED HYPERSENSITIVITY TO ADMINISTERED DRUG [None]
  - DRUG HYPERSENSITIVITY [None]
  - EYELID OEDEMA [None]
  - MEASLES [None]
  - RASH GENERALISED [None]
  - RASH PRURITIC [None]
  - RESPIRATORY TRACT INFECTION [None]
